FAERS Safety Report 10257906 (Version 1)
Quarter: 2014Q2

REPORT INFORMATION
  Report Type: Spontaneous
  Country: US (occurrence: None)
  Receive Date: 20140623
  Receipt Date: 20140623
  Transmission Date: 20141212
  Serious: Yes (Death)
  Sender: FDA-Public Use
  Company Number: 2014STPI000271

PATIENT
  Age: 19 Year
  Sex: Male

DRUGS (1)
  1. CYSTARAN [Suspect]
     Indication: CORNEAL DEPOSITS
     Route: 047
     Dates: start: 201402, end: 20140614

REACTIONS (1)
  - Road traffic accident [None]
